FAERS Safety Report 18716428 (Version 1)
Quarter: 2021Q1

REPORT INFORMATION
  Report Type: Spontaneous
  Country: US (occurrence: US)
  Receive Date: 20210107
  Receipt Date: 20210107
  Transmission Date: 20210419
  Serious: No
  Sender: FDA-Public Use
  Company Number: None

PATIENT
  Age: 68 Year
  Sex: Male

DRUGS (1)
  1. KETOROLAC TROMETHAMINE (KETOROLAC TROMETHAMINE 30MG/ML INJ) [Suspect]
     Active Substance: KETOROLAC TROMETHAMINE
     Indication: PAIN
     Dosage: ?          OTHER ROUTE:IV?
     Dates: start: 20191215, end: 20191215

REACTIONS (2)
  - Anaphylactic reaction [None]
  - Respiratory distress [None]

NARRATIVE: CASE EVENT DATE: 20191215
